FAERS Safety Report 12184840 (Version 2)
Quarter: 2016Q1

REPORT INFORMATION
  Report Type: Spontaneous
  Country: GB (occurrence: GB)
  Receive Date: 20160316
  Receipt Date: 20160329
  Transmission Date: 20160526
  Serious: Yes (Hospitalization)
  Sender: FDA-Public Use
  Company Number: GB-ABBVIE-16P-167-1584902-00

PATIENT
  Sex: Female

DRUGS (1)
  1. CREON [Suspect]
     Active Substance: PANCRELIPASE AMYLASE\PANCRELIPASE LIPASE\PANCRELIPASE PROTEASE
     Indication: PANCREATIC INSUFFICIENCY
     Route: 048

REACTIONS (2)
  - Duodenal stenosis [Unknown]
  - Intestinal stenosis [Unknown]
